FAERS Safety Report 9263959 (Version 2)
Quarter: 2013Q3

REPORT INFORMATION
  Report Type: Spontaneous
  Country: FR (occurrence: FR)
  Receive Date: 20130430
  Receipt Date: 20130703
  Transmission Date: 20140515
  Serious: Yes (Hospitalization)
  Sender: FDA-Public Use
  Company Number: FR-GLAXOSMITHKLINE-B0886058A

PATIENT
  Age: 45 Year
  Sex: Male

DRUGS (6)
  1. REVOLADE [Suspect]
     Indication: THROMBOCYTOPENIA
     Route: 048
     Dates: start: 201109
  2. COPEGUS [Suspect]
     Indication: HEPATITIS C
     Dosage: 4700MG TWICE PER DAY
     Route: 048
     Dates: start: 201109
  3. PEGASYS [Suspect]
     Indication: HEPATITIS C
     Dosage: 1UNIT WEEKLY
     Route: 058
     Dates: start: 201109
  4. NEUPOGEN [Suspect]
     Indication: PRODUCT USED FOR UNKNOWN INDICATION
     Dosage: 1UNIT WEEKLY
     Route: 058
     Dates: start: 201102
  5. NEORECORMON [Suspect]
     Indication: PRODUCT USED FOR UNKNOWN INDICATION
     Route: 065
     Dates: start: 201109
  6. TELAPREVIR [Suspect]
     Indication: HEPATITIS C
     Route: 048
     Dates: start: 201102, end: 201104

REACTIONS (3)
  - Pancytopenia [Unknown]
  - Pyrexia [Unknown]
  - Off label use [Unknown]
